FAERS Safety Report 7928945-6 (Version None)
Quarter: 2011Q4

REPORT INFORMATION
  Report Type: 
  Country: None (occurrence: None)
  Receive Date: 20111118
  Receipt Date: 20111116
  Transmission Date: 20120403
  Serious: Yes (Hospitalization)
  Sender: FDA-Public Use
  Company Number: IT-MERCK-1111ITA00028

PATIENT
  Age: 51 Year
  Sex: Male

DRUGS (1)
  1. PRIMAXIN [Suspect]
     Indication: ENTEROCOCCAL INFECTION
     Route: 042
     Dates: start: 20110802

REACTIONS (1)
  - MUSCLE SPASMS [None]
